FAERS Safety Report 4547214-8 (Version None)
Quarter: 2005Q1

REPORT INFORMATION
  Report Type: 
  Country: None (occurrence: None)
  Receive Date: 20050107
  Receipt Date: 20041227
  Transmission Date: 20050727
  Serious: Yes (Other)
  Sender: FDA-Public Use
  Company Number: DE-JNJFOC-20041201688

PATIENT
  Sex: Male
  Weight: 56 kg

DRUGS (5)
  1. CONCERTA [Suspect]
     Route: 049
  2. CONCERTA [Suspect]
     Indication: ATTENTION DEFICIT/HYPERACTIVITY DISORDER
     Route: 049
  3. RITALIN [Concomitant]
     Route: 049
  4. BEROTEC SPRAY [Concomitant]
     Indication: ASTHMA
     Route: 065
  5. SYMBIOCORD INHALER [Concomitant]
     Indication: ASTHMA
     Route: 065

REACTIONS (1)
  - DEAFNESS NEUROSENSORY [None]
